FAERS Safety Report 10167558 (Version 1)
Quarter: 2014Q2

REPORT INFORMATION
  Report Type: Spontaneous
  Country: US (occurrence: US)
  Receive Date: 20140512
  Receipt Date: 20140512
  Transmission Date: 20141212
  Serious: No
  Sender: FDA-Public Use
  Company Number: US-BAYER-2014-069529

PATIENT
  Age: 69 Year
  Sex: Female
  Weight: 96.15 kg

DRUGS (6)
  1. ALEVE TABLET [Suspect]
     Indication: PAIN IN EXTREMITY
     Dosage: 2 DF, BID
     Route: 048
     Dates: start: 201404
  2. ALEVE TABLET [Suspect]
     Indication: ARTHRALGIA
  3. OMEPRAZOLE [Concomitant]
  4. VITAMIN C [Concomitant]
  5. VITAMIN D3 [Concomitant]
  6. CALCIUM [Concomitant]

REACTIONS (2)
  - Incorrect drug administration duration [None]
  - Extra dose administered [None]
